FAERS Safety Report 11746176 (Version 2)
Quarter: 2015Q4

REPORT INFORMATION
  Report Type: Spontaneous
  Country: JP (occurrence: JP)
  Receive Date: 20151117
  Receipt Date: 20151204
  Transmission Date: 20160304
  Serious: Yes (Death)
  Sender: FDA-Public Use
  Company Number: JP-JNJFOC-20151114558

PATIENT
  Age: 73 Year
  Sex: Female

DRUGS (8)
  1. HIRNAMIN [Concomitant]
     Active Substance: PHENOTHIAZINE
     Route: 048
  2. PAROXETINE HYDROCHLORIDE. [Concomitant]
     Active Substance: PAROXETINE HYDROCHLORIDE
     Route: 048
  3. SODIUM VALPROATE [Concomitant]
     Active Substance: VALPROATE SODIUM
     Route: 048
  4. OLMETEC [Concomitant]
     Active Substance: OLMESARTAN MEDOXOMIL
     Indication: HYPERTENSION
     Route: 048
  5. YOKUKANSAN [Concomitant]
     Active Substance: HERBALS
     Route: 048
  6. XEPLION [Suspect]
     Active Substance: PALIPERIDONE PALMITATE
     Indication: SCHIZOPHRENIA
     Route: 030
     Dates: start: 20131226, end: 20140220
  7. NITRAZEPAM [Concomitant]
     Active Substance: NITRAZEPAM
     Route: 048
  8. PHENYTOIN. [Concomitant]
     Active Substance: PHENYTOIN
     Route: 048

REACTIONS (1)
  - Death [Fatal]
